FAERS Safety Report 8919195 (Version 1)
Quarter: 2012Q4

REPORT INFORMATION
  Report Type: 
  Country: US (occurrence: US)
  Receive Date: 20121121
  Receipt Date: 20121121
  Transmission Date: 20130627
  Serious: No
  Sender: FDA-Public Use
  Company Number: US-PFIZER INC-2012270625

PATIENT
  Age: 81 Year
  Sex: Male
  Weight: 62 kg

DRUGS (17)
  1. INLYTA [Suspect]
     Indication: RENAL CELL CARCINOMA STAGE IV
     Dosage: 5 mg, 2x/day
     Route: 048
     Dates: start: 20120930
  2. TOPROL XL [Concomitant]
     Dosage: 100 mg, 1x/day
     Route: 048
  3. RHINOCORT AQUA [Concomitant]
     Dosage: 2 sprays, QD
  4. NORVASC [Concomitant]
     Dosage: 10 mg, 1x/day
  5. LEVOTHYROXINE [Concomitant]
     Dosage: 25 ug, 1x/day (1 tab daily, 1 time(s))
     Route: 048
  6. METOPROLOL SUCCINATE [Concomitant]
     Dosage: 100 mg, 2x/day
     Route: 048
  7. POTASSIUM CHLORIDE [Concomitant]
     Dosage: 20 ug, 2x/day
     Route: 048
  8. HYDRALAZINE [Concomitant]
     Dosage: 50 mg, 4x/day
     Route: 048
  9. BUDESONIDE [Concomitant]
     Dosage: 2 spray inhalation evening(s) as needed, 2 sprays 1-2 qd prn
     Route: 055
  10. ALBUTEROL [Concomitant]
     Dosage: 2 spray inhalation, four times a day as needed, in the evening
     Route: 055
  11. INOSITOL [Concomitant]
     Dosage: UNK, 2x/day (2 tablets daily, calcium, magnesium
     Route: 048
  12. AMLODIPINE [Concomitant]
     Dosage: 10 mg, every a.m.
     Route: 048
  13. PSYLLIUM [Concomitant]
     Dosage: UNK, as needed
     Route: 048
  14. PRAZOSIN [Concomitant]
     Dosage: 5 mg, 3x/day
     Route: 048
  15. NAPROXEN [Concomitant]
     Dosage: 500 mg, 2x/day
     Route: 048
  16. NYSTATIN [Concomitant]
     Dosage: UNK, as needed, apply to affected skin tid
     Route: 061
  17. WHITE PETROLATUM-MINERAL OIL [Concomitant]
     Indication: FOOT DISCOMFORT
     Dosage: as needed

REACTIONS (2)
  - Urinary incontinence [Unknown]
  - Pollakiuria [Not Recovered/Not Resolved]
